FAERS Safety Report 10347094 (Version 2)
Quarter: 2014Q3

REPORT INFORMATION
  Report Type: Spontaneous
  Country: US (occurrence: US)
  Receive Date: 20140729
  Receipt Date: 20140918
  Transmission Date: 20150326
  Serious: No
  Sender: FDA-Public Use
  Company Number: US-JNJFOC-20140715190

PATIENT
  Age: 77 Year
  Sex: Male

DRUGS (22)
  1. XARELTO [Suspect]
     Active Substance: RIVAROXABAN
     Indication: CEREBROVASCULAR ACCIDENT PROPHYLAXIS
     Route: 048
     Dates: start: 201401
  2. GLYBURIDE. [Concomitant]
     Active Substance: GLYBURIDE
     Dosage: 90DAYS, 3 REFILLS
     Route: 048
  3. XARELTO [Suspect]
     Active Substance: RIVAROXABAN
     Indication: ATRIAL FIBRILLATION
     Route: 048
  4. CYANOCOBALAMIN. [Concomitant]
     Active Substance: CYANOCOBALAMIN
     Dosage: 84 DAYS, 2 REFILLS, INJEST 1 ML EVERY OTHER WEEK AS DIRECTED.
     Route: 050
     Dates: start: 2009
  5. LIPITOR [Concomitant]
     Active Substance: ATORVASTATIN CALCIUM
     Indication: HYPERLIPIDAEMIA
     Route: 065
     Dates: start: 2006
  6. XARELTO [Suspect]
     Active Substance: RIVAROXABAN
     Indication: ATRIAL FIBRILLATION
     Route: 048
     Dates: start: 201401
  7. OMEPRAZOLE. [Concomitant]
     Active Substance: OMEPRAZOLE
     Dosage: CAPSULE FORM AND DELAYED RELEASE (CPDR) 30 DAYS, 3 REFILLS
     Route: 065
  8. PROPRANOLOL HCL [Concomitant]
     Active Substance: PROPRANOLOL HYDROCHLORIDE
     Route: 048
  9. COZAAR [Concomitant]
     Active Substance: LOSARTAN POTASSIUM
     Dosage: 90 DAYS, 3 REFILLS
     Route: 048
  10. HYDROCHLOROTHIAZIDE. [Concomitant]
     Active Substance: HYDROCHLOROTHIAZIDE
     Dosage: 90 DAYS, THREE REFILLS
     Route: 048
  11. XARELTO [Suspect]
     Active Substance: RIVAROXABAN
     Indication: ATRIAL FIBRILLATION
     Route: 048
     Dates: start: 20130309
  12. FOLIC ACID. [Concomitant]
     Active Substance: FOLIC ACID
     Indication: BLOOD HOMOCYSTEINE INCREASED
     Dosage: 90 DAYS, 3 REFILLS
     Route: 048
  13. TRIAMCINOLONE ACETONIDE. [Concomitant]
     Active Substance: TRIAMCINOLONE ACETONIDE
     Dosage: CREA
     Route: 065
  14. VERAPAMIL HCL [Concomitant]
     Active Substance: VERAPAMIL HYDROCHLORIDE
     Dosage: 1/2 TABLET BY MOUTH TWICE A DAY
     Route: 048
  15. XARELTO [Suspect]
     Active Substance: RIVAROXABAN
     Indication: ATRIAL FIBRILLATION
     Dosage: 90 DAYS, 3 REFILLS
     Route: 048
     Dates: start: 201403
  16. LEVOTHYROXINE SODIUM. [Concomitant]
     Active Substance: LEVOTHYROXINE SODIUM
     Dosage: 90 DAYS, 1 REFILL
     Route: 048
     Dates: start: 1995
  17. METFORMIN HCL [Concomitant]
     Active Substance: METFORMIN HYDROCHLORIDE
     Dosage: 90 DAYS, 3 REFILLS
     Route: 048
  18. XARELTO [Suspect]
     Active Substance: RIVAROXABAN
     Indication: CEREBROVASCULAR ACCIDENT PROPHYLAXIS
     Dosage: 90 DAYS, 3 REFILLS
     Route: 048
     Dates: start: 201403
  19. XARELTO [Suspect]
     Active Substance: RIVAROXABAN
     Indication: CEREBROVASCULAR ACCIDENT PROPHYLAXIS
     Route: 048
     Dates: start: 20130309
  20. XARELTO [Suspect]
     Active Substance: RIVAROXABAN
     Indication: CEREBROVASCULAR ACCIDENT PROPHYLAXIS
     Route: 048
  21. CLOBETASOL PROPIONATE. [Concomitant]
     Active Substance: CLOBETASOL PROPIONATE
     Dosage: 90 DAYS, 2 REFILLS, APPLY TO AFFECTED AREA OF SCALP TWICE DAILY FOR 2 WEEKS
     Route: 048
     Dates: start: 2005
  22. PRIMIDONE. [Concomitant]
     Active Substance: PRIMIDONE
     Dosage: 0DAYS, 0 REFILLS
     Route: 065

REACTIONS (3)
  - Incorrect dose administered [Unknown]
  - Pruritus [Not Recovered/Not Resolved]
  - Back pain [Unknown]

NARRATIVE: CASE EVENT DATE: 201401
